FAERS Safety Report 4391068-X (Version None)
Quarter: 2004Q2

REPORT INFORMATION
  Report Type: 
  Country: None (occurrence: None)
  Receive Date: 20040621
  Receipt Date: 20031016
  Transmission Date: 20050107
  Serious: Yes (Other)
  Sender: FDA-Public Use
  Company Number: USA-2003-0006301

PATIENT
  Age: 37 Year
  Sex: Male
  Weight: 102 kg

DRUGS (4)
  1. OXYCONTIN [Suspect]
     Indication: PAIN
     Dosage: 10 MG, BID, ORAL
     Route: 048
     Dates: start: 19990819, end: 20000306
  2. TEGRETOL [Concomitant]
  3. NEURONTIN [Concomitant]
  4. SOMA [Concomitant]

REACTIONS (10)
  - DEPRESSION [None]
  - DRUG DEPENDENCE [None]
  - DRUG WITHDRAWAL SYNDROME [None]
  - EMOTIONAL DISTRESS [None]
  - HEADACHE [None]
  - INSOMNIA [None]
  - NAUSEA [None]
  - PAIN [None]
  - SOMNOLENCE [None]
  - UMBILICAL HERNIA [None]
